FAERS Safety Report 4319255-7 (Version None)
Quarter: 2004Q1

REPORT INFORMATION
  Report Type: 
  Country: None (occurrence: None)
  Receive Date: 20040316
  Receipt Date: 20040302
  Transmission Date: 20041129
  Serious: Yes (Life-Threatening)
  Sender: FDA-Public Use
  Company Number: RENA-10837

PATIENT
  Age: 56 Year
  Sex: Male
  Weight: 71 kg

DRUGS (11)
  1. RENAGEL [Suspect]
     Indication: HYPERPHOSPHATAEMIA
     Dosage: 3 G QD PO
     Route: 048
     Dates: start: 20031116, end: 20031226
  2. RENAGEL [Suspect]
     Indication: HYPERPHOSPHATAEMIA
     Dosage: 1.5 G QD PO
     Route: 048
  3. LOPEMIN [Suspect]
     Indication: DIARRHOEA
     Dosage: 2 MG DAILY PO
     Route: 048
     Dates: start: 20031110, end: 20031226
  4. TEPRENONE [Concomitant]
  5. LAFUTIDINE [Concomitant]
  6. CALCIUM POLYSTYENE SULFONATE [Concomitant]
  7. AMLODIPINE BESYLATE [Concomitant]
  8. METOPROLOL TARTRATE [Concomitant]
  9. DOXAZOSIN MESYLATE [Concomitant]
  10. VALSARTAN [Concomitant]
  11. METHYLDOPA [Concomitant]

REACTIONS (8)
  - ABDOMINAL PAIN [None]
  - ACUTE ABDOMEN [None]
  - CONSTIPATION [None]
  - DIARRHOEA [None]
  - FAECES HARD [None]
  - GASTROINTESTINAL PERFORATION [None]
  - PERITONITIS [None]
  - PYREXIA [None]
